FAERS Safety Report 18923615 (Version 1)
Quarter: 2021Q1

REPORT INFORMATION
  Report Type: Report from Study
  Country: US (occurrence: US)
  Receive Date: 20210222
  Receipt Date: 20210222
  Transmission Date: 20210420
  Serious: Yes (Hospitalization, Other)
  Sender: FDA-Public Use
  Company Number: US-GILEAD-2021-0517647

PATIENT
  Age: 11 Year
  Sex: Male

DRUGS (3)
  1. ORKAMBI [Concomitant]
     Active Substance: IVACAFTOR\LUMACAFTOR
     Dosage: 100?125MG TAB TAKE 2 TABLETS PO BID
     Dates: start: 20181214
  2. PULMOZYME [Concomitant]
     Active Substance: DORNASE ALFA
     Dates: start: 20190227
  3. AZTREONAM LYSINE [Suspect]
     Active Substance: AZTREONAM LYSINE
     Indication: CYSTIC FIBROSIS
     Dosage: 75 MG, TID, ROTATE 28 DAYS ON/OFF
     Route: 055
     Dates: start: 20180803

REACTIONS (1)
  - Cystic fibrosis [Not Recovered/Not Resolved]

NARRATIVE: CASE EVENT DATE: 20210202
